FAERS Safety Report 15111166 (Version 1)
Quarter: 2018Q3

REPORT INFORMATION
  Report Type: Spontaneous
  Country: US (occurrence: US)
  Receive Date: 20180705
  Receipt Date: 20180705
  Transmission Date: 20181010
  Serious: Yes (Other)
  Sender: FDA-Public Use
  Company Number: US-MYLANLABS-2018M1048237

PATIENT
  Age: 16 Year
  Sex: Female

DRUGS (1)
  1. METHIMAZOLE. [Suspect]
     Active Substance: METHIMAZOLE
     Indication: ENDOCRINE OPHTHALMOPATHY
     Route: 065

REACTIONS (6)
  - Retinal vasculitis [Recovering/Resolving]
  - Hypokinesia [Recovering/Resolving]
  - Papilloedema [Recovering/Resolving]
  - Vasculitis necrotising [Recovering/Resolving]
  - Blindness [Recovering/Resolving]
  - Neuropathy peripheral [Recovering/Resolving]
